FAERS Safety Report 10503689 (Version 2)
Quarter: 2014Q4

REPORT INFORMATION
  Report Type: Spontaneous
  Country: JP (occurrence: None)
  Receive Date: 20141003
  Receipt Date: 20141029
  Transmission Date: 20150528
  Serious: Yes (Death)
  Sender: FDA-Public Use
  Company Number: JP-2014-3827

PATIENT
  Age: 57 Year
  Sex: Male

DRUGS (2)
  1. VINORELBINE INN (VINORELBINE TARTRATE) SOLUTION FOR INJECTION [Suspect]
     Active Substance: VINORELBINE TARTRATE
     Indication: LUNG ADENOCARCINOMA STAGE IV
     Route: 042
     Dates: start: 20131023
  2. VINORELBINE INN (VINORELBINE TARTRATE) SOLUTION FOR INJECTION [Suspect]
     Active Substance: VINORELBINE TARTRATE
     Indication: PLEURAL EFFUSION
     Route: 042
     Dates: start: 20131023

REACTIONS (3)
  - Pyelocaliectasis [None]
  - Haemodialysis [None]
  - Postrenal failure [None]
